FAERS Safety Report 6977374-0 (Version None)
Quarter: 2010Q3

REPORT INFORMATION
  Report Type: 
  Country: None (occurrence: None)
  Receive Date: 20100910
  Receipt Date: 20100831
  Transmission Date: 20110219
  Serious: Yes (Other)
  Sender: FDA-Public Use
  Company Number: ES-WATSON-2010-11797

PATIENT
  Age: 25 Year
  Sex: Male

DRUGS (1)
  1. SULFASALAZINE [Suspect]
     Indication: STILL'S DISEASE ADULT ONSET
     Dosage: 500 MG, DAILY

REACTIONS (1)
  - HISTIOCYTOSIS HAEMATOPHAGIC [None]
